FAERS Safety Report 23671436 (Version 2)
Quarter: 2024Q2

REPORT INFORMATION
  Report Type: Spontaneous
  Country: PL (occurrence: PL)
  Receive Date: 20240326
  Receipt Date: 20240410
  Transmission Date: 20240715
  Serious: Yes (Hospitalization, Other)
  Sender: FDA-Public Use
  Company Number: PL-BRISTOL-MYERS SQUIBB COMPANY-2024-046378

PATIENT
  Age: 67 Year
  Sex: Male
  Weight: 117 kg

DRUGS (1)
  1. APIXABAN [Suspect]
     Active Substance: APIXABAN
     Indication: Product used for unknown indication
     Dates: end: 202401

REACTIONS (5)
  - Gastrointestinal haemorrhage [Recovered/Resolved]
  - Hemiparesis [Unknown]
  - Oedema peripheral [Unknown]
  - Skin ulcer haemorrhage [Unknown]
  - Anaemia [Unknown]

NARRATIVE: CASE EVENT DATE: 20231226
